FAERS Safety Report 4672386-4 (Version None)
Quarter: 2005Q2

REPORT INFORMATION
  Report Type: 
  Country: None (occurrence: None)
  Receive Date: 20050524
  Receipt Date: 20050512
  Transmission Date: 20051028
  Serious: Yes (Other)
  Sender: FDA-Public Use
  Company Number: PHBS2005BE06926

PATIENT
  Age: 50 Year
  Sex: Female

DRUGS (9)
  1. PAMIDRONATE DISODIUM [Suspect]
     Dosage: UNK, QD
     Route: 042
     Dates: start: 20040318, end: 20040318
  2. ZOMETA [Suspect]
     Dosage: 4 MG, ONCE/SINGLE
     Route: 042
     Dates: start: 20030415, end: 20030415
  3. AREDIA [Suspect]
     Dosage: 90 MG, QMO
     Route: 042
     Dates: start: 20010208, end: 20020826
  4. AREDIA [Suspect]
     Dosage: 90 MG, ONCE/SINGLE
     Route: 042
     Dates: start: 20031218, end: 20031218
  5. AREDIA [Suspect]
     Dosage: 90 MG, ONCE/SINGLE
     Route: 042
     Dates: start: 20040617, end: 20040617
  6. AREDIA [Suspect]
     Dosage: 90 MG, ONCE/SINGLE
     Route: 042
     Dates: start: 20040923, end: 20040923
  7. AREDIA [Suspect]
     Dosage: 90 MG, ONCE/SINGLE
     Route: 042
     Dates: start: 20041222, end: 20041222
  8. TAMOXIFEN [Concomitant]
     Route: 065
     Dates: start: 19990101
  9. ANASTROZOLE [Concomitant]
     Route: 065
     Dates: start: 20021101

REACTIONS (9)
  - ASEPTIC NECROSIS BONE [None]
  - BONE DISORDER [None]
  - BONE LESION [None]
  - BONE SCAN ABNORMAL [None]
  - CHRONIC SINUSITIS [None]
  - NUCLEAR MAGNETIC RESONANCE IMAGING ABNORMAL [None]
  - PAIN IN JAW [None]
  - SPINAL DISORDER [None]
  - TOOTHACHE [None]
